FAERS Safety Report 4559769-8 (Version None)
Quarter: 2005Q1

REPORT INFORMATION
  Report Type: 
  Country: None (occurrence: None)
  Receive Date: 20050107
  Receipt Date: 20041123
  Transmission Date: 20050727
  Serious: Yes (Hospitalization)
  Sender: FDA-Public Use
  Company Number: 240207

PATIENT
  Age: 32 Year
  Sex: Male
  Weight: 74.8 kg

DRUGS (3)
  1. NOVOLOG [Suspect]
     Indication: DIABETES MELLITUS INSULIN-DEPENDENT
     Dosage: SLIDING SCALE, TID, SUBCUTANEOUS
     Route: 058
     Dates: start: 20031001
  2. NOVOPEN 3 (INSULIN DELIVERY DEVICE) [Concomitant]
  3. LANTUS [Concomitant]

REACTIONS (3)
  - BLOOD GLUCOSE INCREASED [None]
  - NAUSEA [None]
  - VOMITING [None]
